FAERS Safety Report 6248167-7 (Version None)
Quarter: 2009Q2

REPORT INFORMATION
  Report Type: 
  Country: None (occurrence: None)
  Receive Date: 20090624
  Receipt Date: 20090624
  Transmission Date: 20091009
  Serious: No
  Sender: FDA-Public Use
  Company Number: None

PATIENT
  Age: 74 Year
  Sex: Female
  Weight: 64.4108 kg

DRUGS (1)
  1. RALOXIFENE HCL [Suspect]
     Indication: OSTEOPENIA
     Dosage: 60 MG DAILY PO
     Route: 048
     Dates: start: 20061116, end: 20090622

REACTIONS (1)
  - HAIR TEXTURE ABNORMAL [None]
